FAERS Safety Report 12572564 (Version 1)
Quarter: 2016Q3

REPORT INFORMATION
  Report Type: Spontaneous
  Country: ES (occurrence: ES)
  Receive Date: 20160720
  Receipt Date: 20160720
  Transmission Date: 20161109
  Serious: Yes (Other)
  Sender: FDA-Public Use
  Company Number: ES-AMGEN-ESPSP2016091236

PATIENT
  Age: 52 Year
  Sex: Male

DRUGS (6)
  1. HIDROSALURETIL [Concomitant]
     Active Substance: HYDROCHLOROTHIAZIDE
     Indication: HYPERTENSION
     Dosage: 50 MG/DAY
     Route: 048
     Dates: start: 20151110
  2. OMNIC OCAS [Concomitant]
     Active Substance: TAMSULOSIN HYDROCHLORIDE
     Indication: BENIGN PROSTATIC HYPERPLASIA
     Dosage: 0.4 MG/DAY
     Route: 048
     Dates: start: 20130615
  3. LOSARTAN. [Concomitant]
     Active Substance: LOSARTAN
     Indication: HYPERTENSION
     Dosage: 25 MG/DAY
     Route: 048
     Dates: start: 20130430
  4. ALOPURINOL NORMON [Concomitant]
     Indication: HYPERURICAEMIA
     Dosage: 300 MG/DAY
     Route: 048
     Dates: start: 20120530
  5. ENBREL [Suspect]
     Active Substance: ETANERCEPT
     Indication: PSORIATIC ARTHROPATHY
     Dosage: 200 MG, WEEKLY
     Route: 058
     Dates: start: 20100623
  6. SERC [Concomitant]
     Active Substance: BETAHISTINE HYDROCHLORIDE
     Indication: ENDOLYMPHATIC HYDROPS
     Dosage: 32 MG/DAY
     Route: 048
     Dates: start: 20140630

REACTIONS (2)
  - Deep vein thrombosis [Recovering/Resolving]
  - Product use issue [Unknown]

NARRATIVE: CASE EVENT DATE: 20100623
